FAERS Safety Report 9735507 (Version 2)
Quarter: 2013Q4

REPORT INFORMATION
  Report Type: Spontaneous
  Country: US (occurrence: US)
  Receive Date: 20131206
  Receipt Date: 20131206
  Transmission Date: 20140711
  Serious: No
  Sender: FDA-Public Use
  Company Number: US-GILEAD-2009-0023347

PATIENT
  Age: 75 Year
  Sex: Female

DRUGS (8)
  1. LETAIRIS [Suspect]
     Indication: PULMONARY ARTERIAL HYPERTENSION
     Route: 048
     Dates: start: 20090622, end: 20090716
  2. FUROSEMIDE [Concomitant]
  3. DIOVAN [Concomitant]
  4. ASPIRIN [Concomitant]
  5. NEXIUM [Concomitant]
  6. POTASSIUM [Concomitant]
  7. MULTIVITAMINS [Concomitant]
  8. VITAMIN B-12 [Concomitant]

REACTIONS (4)
  - Vision blurred [Not Recovered/Not Resolved]
  - Peripheral coldness [Unknown]
  - Hypoaesthesia [Unknown]
  - Local swelling [Not Recovered/Not Resolved]
